FAERS Safety Report 25031868 (Version 2)
Quarter: 2025Q1

REPORT INFORMATION
  Report Type: Spontaneous
  Country: FR (occurrence: FR)
  Receive Date: 20250303
  Receipt Date: 20250313
  Transmission Date: 20250409
  Serious: Yes (Other)
  Sender: REGENERON
  Company Number: FR-BAYER-2025A025670

PATIENT
  Age: 87 Year
  Sex: Female

DRUGS (1)
  1. EYLEA HD [Suspect]
     Active Substance: AFLIBERCEPT
     Indication: Age-related macular degeneration
     Dates: start: 20250130

REACTIONS (5)
  - Keratic precipitates [Unknown]
  - Keratitis [Unknown]
  - Anterior chamber flare [Unknown]
  - Ocular discomfort [Unknown]
  - Eye pain [Unknown]

NARRATIVE: CASE EVENT DATE: 20250201
